FAERS Safety Report 15692644 (Version 3)
Quarter: 2019Q1

REPORT INFORMATION
  Report Type: Spontaneous
  Country: CA (occurrence: CA)
  Receive Date: 20181206
  Receipt Date: 20190201
  Transmission Date: 20190417
  Serious: Yes (Other)
  Sender: FDA-Public Use
  Company Number: CA-ROCHE-2224828

PATIENT
  Age: 37 Year
  Sex: Female

DRUGS (25)
  1. XOLAIR [Suspect]
     Active Substance: OMALIZUMAB
     Route: 058
     Dates: start: 20180502
  2. XOLAIR [Suspect]
     Active Substance: OMALIZUMAB
     Route: 058
     Dates: start: 20180822
  3. XOLAIR [Suspect]
     Active Substance: OMALIZUMAB
     Route: 058
     Dates: start: 20181114
  4. SINGULAIR [Concomitant]
     Active Substance: MONTELUKAST SODIUM
     Indication: ASTHMA
     Dosage: 1 DF, QD
     Route: 048
     Dates: start: 2016
  5. PREVEX (CANADA) [Concomitant]
     Indication: ECZEMA
     Dosage: 1 DF, PRN
     Route: 061
     Dates: start: 2016
  6. XOLAIR [Suspect]
     Active Substance: OMALIZUMAB
     Dosage: UNK
     Route: 058
     Dates: start: 20170927
  7. XOLAIR [Suspect]
     Active Substance: OMALIZUMAB
     Dosage: 225 MG, BIW
     Route: 058
  8. XOLAIR [Suspect]
     Active Substance: OMALIZUMAB
     Route: 058
     Dates: start: 20180404
  9. QVAR [Concomitant]
     Active Substance: BECLOMETHASONE DIPROPIONATE
     Indication: ASTHMA
     Dosage: 2 DF, BID
     Route: 055
     Dates: start: 201503
  10. PREVACID [Concomitant]
     Active Substance: LANSOPRAZOLE
     Indication: GASTROOESOPHAGEAL REFLUX DISEASE
     Dosage: 1 DF, QD
     Route: 048
     Dates: start: 2016
  11. XOLAIR [Suspect]
     Active Substance: OMALIZUMAB
     Indication: ASTHMA
     Dosage: 225 MG, BIW
     Route: 058
     Dates: start: 20170907
  12. XOLAIR [Suspect]
     Active Substance: OMALIZUMAB
     Route: 058
     Dates: start: 20180308
  13. XOLAIR [Suspect]
     Active Substance: OMALIZUMAB
     Route: 058
     Dates: start: 20180613
  14. XOLAIR [Suspect]
     Active Substance: OMALIZUMAB
     Dosage: UNK
     Route: 058
     Dates: start: 20180125
  15. GAVISCON (ALGINIC ACID) [Concomitant]
     Active Substance: ALGINIC ACID
     Indication: GASTROOESOPHAGEAL REFLUX DISEASE
     Dosage: 1 DF, PRN
     Route: 048
     Dates: start: 2016
  16. XOLAIR [Suspect]
     Active Substance: OMALIZUMAB
     Route: 058
     Dates: start: 20180418
  17. SYMBICORT [Concomitant]
     Active Substance: BUDESONIDE\FORMOTEROL FUMARATE DIHYDRATE
     Indication: ASTHMA
     Dosage: 2 DF, BID
     Route: 055
     Dates: start: 201410
  18. XOLAIR [Suspect]
     Active Substance: OMALIZUMAB
     Route: 058
     Dates: start: 20180418
  19. XOLAIR [Suspect]
     Active Substance: OMALIZUMAB
     Route: 058
     Dates: start: 20180905
  20. XOLAIR [Suspect]
     Active Substance: OMALIZUMAB
     Route: 058
     Dates: start: 20181114
  21. ZANTAC [Concomitant]
     Active Substance: RANITIDINE HYDROCHLORIDE
     Indication: GASTROOESOPHAGEAL REFLUX DISEASE
     Dosage: 1 DF, QD
     Route: 048
     Dates: start: 2016
  22. XOLAIR [Suspect]
     Active Substance: OMALIZUMAB
     Route: 058
     Dates: start: 20180208
  23. XOLAIR [Suspect]
     Active Substance: OMALIZUMAB
     Route: 058
     Dates: start: 20181128
  24. MOMETASONE [Concomitant]
     Active Substance: MOMETASONE
     Indication: ECZEMA
     Dosage: 1 DF, PRN
     Route: 061
     Dates: start: 2016
  25. EUCERIN (UREA) [Concomitant]
     Indication: ECZEMA
     Dosage: 1 DF, QD
     Route: 061
     Dates: start: 2016

REACTIONS (20)
  - Skin laceration [Unknown]
  - Cough [Recovering/Resolving]
  - Eczema [Unknown]
  - Fibula fracture [Unknown]
  - Eye pruritus [Unknown]
  - Migraine [Unknown]
  - Sense of oppression [Recovering/Resolving]
  - Nasopharyngitis [Recovering/Resolving]
  - Asthma [Unknown]
  - Injection site discomfort [Unknown]
  - Dyspnoea [Unknown]
  - Blood pressure increased [Unknown]
  - Neuritis [Unknown]
  - Pain [Unknown]
  - Ligament rupture [Unknown]
  - Mobility decreased [Unknown]
  - Somnolence [Unknown]
  - Pyrexia [Recovering/Resolving]
  - Pharyngitis [Unknown]
  - Phlebitis [Unknown]

NARRATIVE: CASE EVENT DATE: 20180102
